APPROVED DRUG PRODUCT: MACITENTAN
Active Ingredient: MACITENTAN
Strength: 10MG
Dosage Form/Route: TABLET;ORAL
Application: A211123 | Product #001 | TE Code: AB
Applicant: SUN PHARMACEUTICAL INDUSTRIES LTD
Approved: Aug 26, 2025 | RLD: No | RS: No | Type: RX